FAERS Safety Report 4808223-4 (Version None)
Quarter: 2005Q4

REPORT INFORMATION
  Report Type: 
  Country: None (occurrence: None)
  Receive Date: 20051025
  Receipt Date: 20040607
  Transmission Date: 20060501
  Serious: Yes (Hospitalization)
  Sender: FDA-Public Use
  Company Number: FR-BOEHRINGER INGELHEIM PHARMACEUTICALS, INC.-2004-FF-00355FF

PATIENT
  Sex: Female
  Weight: 83 kg

DRUGS (3)
  1. TIPRANAVIR + RITONAVIR CO-ADMIN [Suspect]
     Indication: HIV INFECTION
     Dosage: TPV/RTV  500/200 MG B.I.D.
     Route: 048
     Dates: start: 20040524, end: 20040607
  2. FUZEON [Concomitant]
     Indication: HIV INFECTION
     Route: 058
     Dates: start: 20040524, end: 20040607
  3. BACTRIM [Concomitant]
     Dosage: 800/160 MG DAILY
     Route: 048
     Dates: start: 19900615

REACTIONS (2)
  - CYTOLYTIC HEPATITIS [None]
  - HEPATIC STEATOSIS [None]
